FAERS Safety Report 6941611-9 (Version None)
Quarter: 2010Q3

REPORT INFORMATION
  Report Type: 
  Country: None (occurrence: None)
  Receive Date: 20100825
  Receipt Date: 20100823
  Transmission Date: 20110219
  Serious: Yes (Hospitalization)
  Sender: FDA-Public Use
  Company Number: US-GILEAD-2010-0031143

PATIENT
  Sex: Female
  Weight: 53.572 kg

DRUGS (13)
  1. LETAIRIS [Suspect]
     Indication: PULMONARY ARTERIAL HYPERTENSION
     Route: 048
     Dates: start: 20071005
  2. METOPROLOL [Concomitant]
  3. LIPITOR [Concomitant]
  4. ASTELIN [Concomitant]
  5. HUMIRA [Concomitant]
  6. LEXAPRO [Concomitant]
  7. LAMICTAL [Concomitant]
  8. LEVOXYL [Concomitant]
  9. EVISTA [Concomitant]
  10. PREMARIN [Concomitant]
  11. TYLENOL (CAPLET) [Concomitant]
  12. LITHIUM CARBONATE [Concomitant]
  13. FOLIC ACID [Concomitant]

REACTIONS (2)
  - GASTROOESOPHAGEAL REFLUX DISEASE [None]
  - OESOPHAGEAL HYPOMOTILITY [None]
